FAERS Safety Report 22084205 (Version 2)
Quarter: 2023Q2

REPORT INFORMATION
  Report Type: Spontaneous
  Country: JP (occurrence: JP)
  Receive Date: 20230310
  Receipt Date: 20230411
  Transmission Date: 20230722
  Serious: Yes (Death, Other)
  Sender: FDA-Public Use
  Company Number: JP-OTSUKA-2023_006153

PATIENT
  Age: 78 Year
  Sex: Male

DRUGS (5)
  1. ABILIFY MAINTENA [Suspect]
     Active Substance: ARIPIPRAZOLE
     Indication: Schizophrenia
     Dosage: 300/SHOT
     Route: 030
     Dates: start: 20230208, end: 20230208
  2. HALOPERIDOL [Concomitant]
     Active Substance: HALOPERIDOL
     Indication: Product used for unknown indication
     Dosage: UNK
     Route: 030
     Dates: end: 20230212
  3. OLANZAPINE [Concomitant]
     Active Substance: OLANZAPINE
     Indication: Product used for unknown indication
     Dosage: UNK
     Route: 042
     Dates: end: 20230212
  4. AKINETON [Concomitant]
     Active Substance: BIPERIDEN HYDROCHLORIDE
     Indication: Product used for unknown indication
     Dosage: UNK
     Route: 030
     Dates: end: 20230212
  5. MEROPENEM [Concomitant]
     Active Substance: MEROPENEM
     Indication: Product used for unknown indication
     Dosage: UNK
     Route: 041
     Dates: end: 20230212

REACTIONS (4)
  - Marasmus [Fatal]
  - Pneumonia [Fatal]
  - Malnutrition [Unknown]
  - Dysphagia [Unknown]

NARRATIVE: CASE EVENT DATE: 20230212
